FAERS Safety Report 9184964 (Version 1)
Quarter: 2013Q1

REPORT INFORMATION
  Report Type: Report from Study
  Country: JP (occurrence: JP)
  Receive Date: 20130325
  Receipt Date: 20130325
  Transmission Date: 20140127
  Serious: Yes (Hospitalization)
  Sender: FDA-Public Use
  Company Number: JP-SHIRE-SPV1-2010-02175

PATIENT
  Age: 74 Year
  Sex: Male

DRUGS (14)
  1. 405 (LANTHANUM CARBONATE) [Suspect]
     Indication: HYPERPHOSPHATAEMIA
     Dosage: 750 MG, OTHER (TOTAL DAILY DOSE)
     Route: 048
     Dates: start: 20100203, end: 20100508
  2. 405 (LANTHANUM CARBONATE) [Suspect]
     Dosage: 750 MG, OTHER (TOTAL DAILY DOSE)
     Route: 048
     Dates: start: 20100512, end: 20100519
  3. BAYASPIRIN [Suspect]
     Indication: PRODUCT USED FOR UNKNOWN INDICATION
     Dosage: 100 MG, OTHER (TOTAL DAILY DOSE)
     Route: 048
  4. PLAVIX                             /01220701/ [Suspect]
     Indication: PRODUCT USED FOR UNKNOWN INDICATION
     Dosage: 75 MG, OTHER, DAILY DOSE
     Route: 048
  5. ONEALFA [Concomitant]
     Indication: PRODUCT USED FOR UNKNOWN INDICATION
     Dosage: 0.5 ?G, UNKNOWN
     Route: 048
     Dates: start: 20091111
  6. ZADITEN [Concomitant]
     Indication: PRODUCT USED FOR UNKNOWN INDICATION
     Dosage: 2 MG, UNKNOWN
     Route: 048
  7. PROTECADIN [Concomitant]
     Indication: PRODUCT USED FOR UNKNOWN INDICATION
     Dosage: 10 MG, UNKNOWN
     Route: 048
  8. GOODMIN [Concomitant]
     Indication: INSOMNIA
     Dosage: 0.25 MG, AS REQ^D
     Route: 048
  9. LAC B [Concomitant]
     Indication: PRODUCT USED FOR UNKNOWN INDICATION
     Dosage: 3 G, UNKNOWN
     Route: 048
  10. JUVELA N [Concomitant]
     Indication: PRODUCT USED FOR UNKNOWN INDICATION
     Dosage: 300 MG, UNKNOWN
     Route: 048
  11. MEVALOTIN [Concomitant]
     Indication: PRODUCT USED FOR UNKNOWN INDICATION
     Dosage: 5 MG, UNKNOWN
     Route: 048
  12. NORVASC [Concomitant]
     Indication: PRODUCT USED FOR UNKNOWN INDICATION
     Dosage: 5 MG, UNKNOWN
     Route: 048
  13. FOLIAMIN [Concomitant]
     Indication: PRODUCT USED FOR UNKNOWN INDICATION
     Dosage: 10 MG, UNKNOWN
     Route: 048
  14. RENAGEL                            /01459902/ [Concomitant]
     Indication: HYPERPHOSPHATAEMIA
     Dosage: 2250 MG, UNKNOWN
     Route: 048
     Dates: end: 2010

REACTIONS (2)
  - Gastric ulcer haemorrhage [Recovering/Resolving]
  - Rectal ulcer haemorrhage [Unknown]
